FAERS Safety Report 9479415 (Version 1)
Quarter: 2013Q3

REPORT INFORMATION
  Report Type: Spontaneous
  Country: GB (occurrence: GB)
  Receive Date: 20130827
  Receipt Date: 20130827
  Transmission Date: 20140515
  Serious: Yes (Other)
  Sender: FDA-Public Use
  Company Number: GB-WATSON-2013-15403

PATIENT
  Age: 67 Year
  Sex: Female

DRUGS (1)
  1. LISINOPRIL (UNKNOWN) [Suspect]
     Indication: HYPERTENSION
     Dosage: 10 MG, UNKNOWN
     Route: 065

REACTIONS (2)
  - Fibromyalgia [Unknown]
  - Rosacea [Recovering/Resolving]
